FAERS Safety Report 5645122-2 (Version None)
Quarter: 2008Q1

REPORT INFORMATION
  Report Type: 
  Country: None (occurrence: None)
  Receive Date: 20080229
  Receipt Date: 20080218
  Transmission Date: 20080703
  Serious: Yes (Hospitalization)
  Sender: FDA-Public Use
  Company Number: ES-ROCHE-547932

PATIENT
  Age: 55 Year
  Sex: Male

DRUGS (6)
  1. CAPECITABINE [Suspect]
     Dosage: FORM: FILM-COATED TABLETS
     Route: 048
     Dates: start: 20050428, end: 20051006
  2. IRINOTECAN [Suspect]
     Dosage: DOSAGE: 456MG/CYCLICAL
     Route: 042
     Dates: start: 20050428, end: 20051006
  3. DEXAMETHASONE TAB [Concomitant]
     Dosage: DRUG REPORTED: DEXAMETASONE
     Route: 042
     Dates: start: 20051006, end: 20051006
  4. ONDANSETRON [Concomitant]
     Route: 042
     Dates: start: 20051006, end: 20051006
  5. ONDANSETRON [Concomitant]
     Route: 042
     Dates: start: 20051007, end: 20051009
  6. LARGACTIL [Concomitant]
     Indication: HICCUPS
     Route: 048
     Dates: start: 20051008, end: 20051017

REACTIONS (3)
  - HAEMATEMESIS [None]
  - OESOPHAGITIS [None]
  - UPPER GASTROINTESTINAL HAEMORRHAGE [None]
